FAERS Safety Report 8053668-5 (Version None)
Quarter: 2012Q1

REPORT INFORMATION
  Report Type: 
  Country: None (occurrence: None)
  Receive Date: 20120118
  Receipt Date: 20120110
  Transmission Date: 20120608
  Serious: Yes (Disabling)
  Sender: FDA-Public Use
  Company Number: PHHY2012GB002022

PATIENT
  Age: 39 Year
  Sex: Female
  Weight: 85 kg

DRUGS (5)
  1. CLARITHROMYCIN [Concomitant]
     Dosage: UNK
     Dates: start: 20111206, end: 20111213
  2. NAPROXEN [Concomitant]
     Dosage: UNK
     Dates: start: 20111228
  3. DIAZEPAM [Suspect]
     Dosage: UNK
     Dates: start: 20111228
  4. RIGEVIDON [Concomitant]
     Dosage: UNK
     Dates: start: 20110830
  5. TRAMADOL HCL [Concomitant]
     Dosage: UNK
     Dates: start: 20111228

REACTIONS (2)
  - NIGHTMARE [None]
  - TREMOR [None]
